FAERS Safety Report 24064857 (Version 6)
Quarter: 2024Q4

REPORT INFORMATION
  Report Type: Spontaneous
  Country: US (occurrence: US)
  Receive Date: 20240709
  Receipt Date: 20241202
  Transmission Date: 20250115
  Serious: No
  Sender: PFIZER
  Company Number: US-PFIZER INC-202400200765

PATIENT
  Age: 14 Year
  Sex: Male
  Weight: 47.63 kg

DRUGS (1)
  1. GENOTROPIN [Suspect]
     Active Substance: SOMATROPIN
     Indication: Hormone level abnormal
     Dosage: 2.0 MG, ADMINISTERED EVERY DAY, IN HIS ARM OR LEG, SHOT

REACTIONS (5)
  - Device information output issue [Unknown]
  - Device power source issue [Unknown]
  - Product storage error [Unknown]
  - Drug dose omission by device [Unknown]
  - Product administered at inappropriate site [Unknown]
